FAERS Safety Report 8793901 (Version 2)
Quarter: 2012Q4

REPORT INFORMATION
  Report Type: 
  Country: IN (occurrence: IN)
  Receive Date: 20120918
  Receipt Date: 20121010
  Transmission Date: 20130627
  Serious: Yes (Death)
  Sender: FDA-Public Use
  Company Number: IN-MERCK-1209IND003871

PATIENT
  Age: 54 Year

DRUGS (1)
  1. JANUMET [Suspect]
     Dosage: 50/500 frequency-2tablet

REACTIONS (1)
  - Cerebrovascular accident [Fatal]
